FAERS Safety Report 4898149-2 (Version None)
Quarter: 2006Q1

REPORT INFORMATION
  Report Type: 
  Country: None (occurrence: None)
  Receive Date: 20060201
  Receipt Date: 20060111
  Transmission Date: 20060701
  Serious: Yes (Hospitalization)
  Sender: FDA-Public Use
  Company Number: DE-ABBOTT-06P-062-0321875-00

PATIENT
  Sex: Male

DRUGS (16)
  1. KALETRA [Suspect]
     Indication: HIV INFECTION
     Dosage: 800MG/200MG 3 TABLETS TWICE A DAY
     Route: 048
     Dates: start: 20051213
  2. KALETRA [Suspect]
     Indication: ACQUIRED IMMUNODEFICIENCY SYNDROME
  3. REYATAZ [Concomitant]
     Indication: HIV INFECTION
     Route: 048
     Dates: start: 20051213
  4. REYATAZ [Concomitant]
     Indication: ACQUIRED IMMUNODEFICIENCY SYNDROME
  5. BACTRIM [Concomitant]
     Indication: PROPHYLAXIS
     Route: 048
     Dates: start: 20050101, end: 20051221
  6. LOPERAMIDE [Concomitant]
     Indication: DIARRHOEA
     Route: 048
     Dates: start: 20051208, end: 20051208
  7. METOCLOPRAMIDE [Concomitant]
     Indication: NAUSEA
     Route: 048
     Dates: start: 20051208, end: 20051208
  8. METHYLPREDNISOLONE ACEPONATE [Concomitant]
     Indication: RASH
     Route: 061
     Dates: start: 20051212, end: 20051215
  9. DECODERMTRI [Concomitant]
     Indication: PERIPROCTITIS
     Route: 061
     Dates: start: 20051212, end: 20051214
  10. FAMVIR ZOSTER [Concomitant]
     Indication: HERPES ZOSTER
     Route: 048
     Dates: start: 20051215, end: 20051227
  11. CIPROFLOXACIN [Concomitant]
     Indication: RESPIRATORY TRACT INFECTION
     Route: 048
     Dates: start: 20051221, end: 20060102
  12. DIMETINDENE MALEATE [Concomitant]
     Indication: HYPERSENSITIVITY
     Route: 048
     Dates: start: 20051221, end: 20051227
  13. TRIAMCINOLONACCTONID [Concomitant]
     Indication: SKIN FISSURES
     Dates: start: 20051222, end: 20051227
  14. NYSTATIN [Concomitant]
     Indication: SKIN FISSURES
     Dates: start: 20051222, end: 20051226
  15. ANTIRETROVIRAL THERAPY [Concomitant]
     Indication: HIV INFECTION
     Dates: start: 20051213
  16. ATOVAQUONE [Concomitant]
     Indication: DRUG USE FOR UNKNOWN INDICATION
     Route: 048

REACTIONS (3)
  - GENERAL PHYSICAL HEALTH DETERIORATION [None]
  - PNEUMOCYSTIS JIROVECI PNEUMONIA [None]
  - PNEUMONIA PNEUMOCOCCAL [None]
